FAERS Safety Report 25396255 (Version 2)
Quarter: 2025Q3

REPORT INFORMATION
  Report Type: Spontaneous
  Country: US (occurrence: US)
  Receive Date: 20250604
  Receipt Date: 20250728
  Transmission Date: 20251020
  Serious: Yes (Other)
  Sender: PFIZER
  Company Number: US-PFIZER INC-202500015791

PATIENT
  Age: 64 Year
  Sex: Male

DRUGS (1)
  1. XELJANZ XR [Suspect]
     Active Substance: TOFACITINIB CITRATE
     Indication: Rheumatoid arthritis
     Dosage: 11 MG, DAILY
     Route: 048
     Dates: start: 202406

REACTIONS (9)
  - Neuropathy peripheral [Not Recovered/Not Resolved]
  - Condition aggravated [Recovered/Resolved]
  - Limb injury [Recovering/Resolving]
  - Joint injury [Recovering/Resolving]
  - Gait disturbance [Not Recovered/Not Resolved]
  - Fall [Recovering/Resolving]
  - Blood pressure fluctuation [Unknown]
  - Oxygen saturation decreased [Unknown]
  - Product dose omission in error [Unknown]

NARRATIVE: CASE EVENT DATE: 20240101
